FAERS Safety Report 24704624 (Version 2)
Quarter: 2024Q4

REPORT INFORMATION
  Report Type: Spontaneous
  Country: JP (occurrence: JP)
  Receive Date: 20241206
  Receipt Date: 20241228
  Transmission Date: 20250115
  Serious: Yes (Other)
  Sender: GLAXOSMITHKLINE
  Company Number: JP-GSK-JP2024JPN151496

PATIENT

DRUGS (6)
  1. VALACYCLOVIR HYDROCHLORIDE [Suspect]
     Active Substance: VALACYCLOVIR HYDROCHLORIDE
     Indication: Herpes zoster
     Dosage: 3000 MG, QD
     Route: 048
     Dates: start: 20241126
  2. BILASTINE [Concomitant]
     Active Substance: BILASTINE
     Dosage: 20 MG, QD
     Route: 048
     Dates: start: 20240501
  3. LOXOPROFEN SODIUM [Concomitant]
     Active Substance: LOXOPROFEN SODIUM
     Dosage: 180 MG, QD
     Route: 048
     Dates: start: 20241127, end: 20241129
  4. TEPRENONE [Concomitant]
     Active Substance: TEPRENONE
     Dosage: 150 MG, QD
     Route: 048
     Dates: start: 20241127, end: 20241129
  5. CALONAL [Concomitant]
     Active Substance: ACETAMINOPHEN
     Dosage: 1200 MG, QD
     Route: 048
     Dates: start: 20241126
  6. CALONAL [Concomitant]
     Active Substance: ACETAMINOPHEN
     Dosage: 1500 MG, QD
     Route: 048
     Dates: start: 20241129

REACTIONS (6)
  - Interstitial lung disease [Unknown]
  - Hyperamylasaemia [Unknown]
  - Pyrexia [Unknown]
  - Headache [Unknown]
  - Vomiting [Unknown]
  - Nausea [Unknown]

NARRATIVE: CASE EVENT DATE: 20241128
